FAERS Safety Report 9423168 (Version 2)
Quarter: 2013Q3

REPORT INFORMATION
  Report Type: Report from Study
  Country: US (occurrence: US)
  Receive Date: 20130726
  Receipt Date: 20130830
  Transmission Date: 20140515
  Serious: Yes (Hospitalization)
  Sender: FDA-Public Use
  Company Number: US-TEVA-416080USA

PATIENT
  Age: 66 Year
  Sex: Male
  Weight: 97 kg

DRUGS (6)
  1. BENDAMUSTINE [Suspect]
     Indication: CHRONIC LYMPHOCYTIC LEUKAEMIA
     Route: 042
     Dates: start: 20130605, end: 20130605
  2. RITUXIMAB [Suspect]
     Indication: CHRONIC LYMPHOCYTIC LEUKAEMIA
     Route: 042
     Dates: start: 20130604, end: 20130605
  3. ALLOPURINOL [Suspect]
     Indication: PROPHYLAXIS
     Dosage: 100 MILLIGRAM DAILY; UID/QD
     Route: 048
     Dates: start: 20130604
  4. PLACEBO [Suspect]
     Indication: CHRONIC LYMPHOCYTIC LEUKAEMIA
     Dosage: 420 MILLIGRAM DAILY;
     Route: 048
     Dates: start: 20130605, end: 20130615
  5. ADVIL [Concomitant]
     Indication: ARTHRALGIA
     Route: 048
     Dates: start: 20130531
  6. OCUVITE [Concomitant]
     Indication: PRODUCT USED FOR UNKNOWN INDICATION
     Route: 048
     Dates: start: 201303

REACTIONS (6)
  - Pemphigus [Not Recovered/Not Resolved]
  - Conjunctivitis [Recovered/Resolved]
  - Rash [Recovered/Resolved with Sequelae]
  - Pruritus [Unknown]
  - Pain [Unknown]
  - Pain in extremity [Unknown]
